FAERS Safety Report 6408085-8 (Version None)
Quarter: 2009Q4

REPORT INFORMATION
  Report Type: 
  Country: None (occurrence: None)
  Receive Date: 20091016
  Receipt Date: 20091006
  Transmission Date: 20100525
  Serious: Yes (Other)
  Sender: FDA-Public Use
  Company Number: 2009AP004066

PATIENT
  Sex: Female

DRUGS (2)
  1. TRIAMTERENE AND HYDROCHLOROTHIAZIDE [Suspect]
  2. ALISKIREN FUMARATE [Concomitant]

REACTIONS (4)
  - DYSPNOEA [None]
  - NEPHROLITHIASIS [None]
  - PAIN [None]
  - SERUM SICKNESS [None]
